FAERS Safety Report 4511399-X (Version None)
Quarter: 2004Q4

REPORT INFORMATION
  Report Type: 
  Country: None (occurrence: None)
  Receive Date: 20041129
  Receipt Date: 20040608
  Transmission Date: 20050328
  Serious: Yes (Other)
  Sender: FDA-Public Use
  Company Number: US-BRISTOL-MYERS SQUIBB COMPANY-12608246

PATIENT
  Age: 23 Year
  Sex: Female

DRUGS (4)
  1. ABILIFY [Suspect]
     Indication: BIPOLAR DISORDER
     Route: 048
     Dates: start: 20040604, end: 20040608
  2. ABILIFY [Suspect]
     Indication: PSYCHOTIC DISORDER
     Route: 048
     Dates: start: 20040604, end: 20040608
  3. LAMICTAL [Concomitant]
     Dates: start: 20040204
  4. TOPAMAX [Concomitant]
     Dates: start: 20031203

REACTIONS (1)
  - CONVULSION [None]
